FAERS Safety Report 7003893-7 (Version None)
Quarter: 2010Q3

REPORT INFORMATION
  Report Type: 
  Country: None (occurrence: None)
  Receive Date: 20100920
  Receipt Date: 20091210
  Transmission Date: 20110219
  Serious: No
  Sender: FDA-Public Use
  Company Number: US-WYE-H12627009

PATIENT
  Sex: Male

DRUGS (8)
  1. PRISTIQ [Suspect]
     Indication: ANXIETY
     Route: 048
     Dates: start: 20090901
  2. MULTI-VITAMINS [Concomitant]
  3. CALCIUM PHOSPHATE/CALCIUM SODIUM LACTATE/ERGOCALCIFEROL [Concomitant]
  4. DIOVAN [Concomitant]
  5. ACETYLSALICYLIC ACID [Concomitant]
  6. GLYBURIDE [Concomitant]
  7. LIPITOR [Concomitant]
  8. METOPROLOL [Concomitant]

REACTIONS (1)
  - DRUG INEFFECTIVE [None]
